FAERS Safety Report 11298246 (Version 1)
Quarter: 2015Q3

REPORT INFORMATION
  Report Type: Spontaneous
  Country: US (occurrence: US)
  Receive Date: 20150722
  Receipt Date: 20150722
  Transmission Date: 20151125
  Serious: No
  Sender: FDA-Public Use
  Company Number: US-ELI_LILLY_AND_COMPANY-US201108001872

PATIENT
  Sex: Male
  Weight: 89 kg

DRUGS (11)
  1. METFORMIN [Concomitant]
     Active Substance: METFORMIN HYDROCHLORIDE
     Dosage: 1000MG AT NIGHT WITH MEALS
  2. AVAPRO [Concomitant]
     Active Substance: IRBESARTAN
  3. EFFIENT [Suspect]
     Active Substance: PRASUGREL HYDROCHLORIDE
     Indication: STENT PLACEMENT
     Dosage: 10 MG, UNKNOWN
     Dates: start: 20110514
  4. CRESTOR [Concomitant]
     Active Substance: ROSUVASTATIN CALCIUM
     Dosage: 5 MG, QD
  5. DILTIAZEM [Concomitant]
     Active Substance: DILTIAZEM
     Dosage: 240 MG, QD
  6. LEXAPRO [Concomitant]
     Active Substance: ESCITALOPRAM OXALATE
     Dosage: 2.5 MG, QD
  7. METFORMIN HYDROCHLORIDE W/PIOGLITAZONE HYDROC [Concomitant]
     Dosage: 1 TABLET DAILY
  8. AMBIEN [Concomitant]
     Active Substance: ZOLPIDEM TARTRATE
     Dosage: 5 MG, ABOUT 3 DAYS PER WEEK
  9. DOXYCYCLINE. [Concomitant]
     Active Substance: DOXYCYCLINE
     Dosage: 100 MG, 2 PILLS DAILY (ONE IN THE MORNING AND ONE AT NIGHT)
  10. ASPIRIN. [Concomitant]
     Active Substance: ASPIRIN
     Dosage: 325 MG, QD
  11. ATENOLOL. [Concomitant]
     Active Substance: ATENOLOL
     Dosage: 25 MG, QD

REACTIONS (8)
  - Pyrexia [Unknown]
  - Asthenia [Unknown]
  - Weight decreased [Unknown]
  - Oropharyngeal pain [Unknown]
  - Somnolence [Unknown]
  - Diarrhoea [Unknown]
  - Dizziness [Unknown]
  - Speech disorder [Unknown]
